FAERS Safety Report 8503459-3 (Version None)
Quarter: 2012Q3

REPORT INFORMATION
  Report Type: 
  Country: None (occurrence: None)
  Receive Date: 20120711
  Receipt Date: 20120707
  Transmission Date: 20120928
  Serious: Yes (Death, Hospitalization)
  Sender: FDA-Public Use
  Company Number: US-GLAXOSMITHKLINE-A0982622A

PATIENT
  Age: 61 Year
  Sex: Female

DRUGS (1)
  1. FLOLAN [Suspect]
     Dosage: 22NG CONTINUOUS
     Route: 065
     Dates: start: 20120322

REACTIONS (3)
  - DYSPNOEA [None]
  - CARDIAC FAILURE CONGESTIVE [None]
  - DEATH [None]
